FAERS Safety Report 10119316 (Version 1)
Quarter: 2014Q2

REPORT INFORMATION
  Report Type: Spontaneous
  Country: US (occurrence: US)
  Receive Date: 20140425
  Receipt Date: 20140425
  Transmission Date: 20141212
  Serious: No
  Sender: FDA-Public Use
  Company Number: US-PFIZER INC-2014110807

PATIENT
  Age: 47 Year
  Sex: Female

DRUGS (3)
  1. CELEBREX [Suspect]
     Indication: SOFT TISSUE INJURY
     Dosage: UNK
     Dates: start: 201401, end: 201401
  2. LEXAPRO [Suspect]
     Indication: OBSESSIVE-COMPULSIVE DISORDER
     Dosage: 10 MG, (1 IN 1 D)
     Route: 048
     Dates: start: 2012
  3. OMEGA-3 [Concomitant]
     Dosage: UNK

REACTIONS (9)
  - Off label use [Unknown]
  - Asthenia [Recovered/Resolved]
  - Vomiting [Recovered/Resolved]
  - Diarrhoea [Recovered/Resolved]
  - Vertigo [Recovered/Resolved]
  - Malaise [Recovered/Resolved]
  - Hypervigilance [Recovered/Resolved]
  - Nausea [Recovered/Resolved]
  - Immune system disorder [Unknown]
